FAERS Safety Report 26088558 (Version 1)
Quarter: 2025Q4

REPORT INFORMATION
  Report Type: Spontaneous
  Country: US (occurrence: None)
  Receive Date: 20251125
  Receipt Date: 20251125
  Transmission Date: 20260117
  Serious: No
  Sender: FDA-CTU
  Company Number: None

PATIENT
  Age: 53 Year
  Sex: Female
  Weight: 75.15 kg

DRUGS (1)
  1. OCREVUS [Suspect]
     Active Substance: OCRELIZUMAB
     Dosage: OTHER FREQUENCY : EVERY 6 MONTHS;?
     Route: 041

REACTIONS (3)
  - Throat irritation [None]
  - Lacrimation increased [None]
  - Otorrhoea [None]

NARRATIVE: CASE EVENT DATE: 20251125
